FAERS Safety Report 15858957 (Version 1)
Quarter: 2019Q1

REPORT INFORMATION
  Report Type: Spontaneous
  Country: US (occurrence: US)
  Receive Date: 20190122
  Receipt Date: 20190122
  Transmission Date: 20190417
  Serious: Yes (Hospitalization)
  Sender: FDA-Public Use
  Company Number: None

PATIENT
  Sex: Female

DRUGS (28)
  1. LISINOPRIL AND HYDROCHLOROTHIAZIDE [Concomitant]
     Active Substance: HYDROCHLOROTHIAZIDE\LISINOPRIL
  2. HUMULIN R [Concomitant]
     Active Substance: INSULIN HUMAN
  3. MUPIROCIN. [Concomitant]
     Active Substance: MUPIROCIN
  4. XOLAIR [Suspect]
     Active Substance: OMALIZUMAB
     Indication: ASTHMA
     Route: 058
     Dates: start: 20140319
  5. EPIPEN [Concomitant]
     Active Substance: EPINEPHRINE
  6. CHERTUSSIN [Concomitant]
  7. AMOX/K CLAV [Concomitant]
     Active Substance: AMOXICILLIN\CLAVULANATE POTASSIUM
  8. FOLIC ACID. [Concomitant]
     Active Substance: FOLIC ACID
  9. OMEPERAZOLE [Concomitant]
     Active Substance: OMEPRAZOLE
  10. CEFUROXIME. [Concomitant]
     Active Substance: CEFUROXIME
  11. RITALIN [Concomitant]
     Active Substance: METHYLPHENIDATE HYDROCHLORIDE
  12. WARFARIN [Concomitant]
     Active Substance: WARFARIN
  13. PREDNISONE. [Concomitant]
     Active Substance: PREDNISONE
  14. AZITHROMYCIN ANHYDROUS. [Concomitant]
     Active Substance: AZITHROMYCIN ANHYDROUS
  15. CLOTRIM/BETA [Concomitant]
  16. HYDRO/APAP [Concomitant]
     Active Substance: ACETAMINOPHEN\HYDROCODONE
  17. VALTREX [Concomitant]
     Active Substance: VALACYCLOVIR HYDROCHLORIDE
  18. ENABLEX [Concomitant]
     Active Substance: DARIFENACIN HYDROBROMIDE
  19. LANTUS [Concomitant]
     Active Substance: INSULIN GLARGINE
  20. METHYLPRED [Suspect]
     Active Substance: METHYLPREDNISOLONE
  21. LEVAQUIN [Concomitant]
     Active Substance: LEVOFLOXACIN
  22. DOXYCYCL HYC [Concomitant]
  23. CEPHALEXIN. [Concomitant]
     Active Substance: CEPHALEXIN
  24. GABAPENTIN. [Concomitant]
     Active Substance: GABAPENTIN
  25. ROPINROLE [Concomitant]
  26. AVELOX [Concomitant]
     Active Substance: MOXIFLOXACIN HYDROCHLORIDE
  27. HALFLYTELY [Concomitant]
     Active Substance: POLYETHYLENE GLYCOL 3350\POTASSIUM CHLORIDE\SODIUM BICARBONATE\SODIUM CHLORIDE
  28. TYLENOL [Concomitant]
     Active Substance: ACETAMINOPHEN

REACTIONS (1)
  - Asthma [None]
